FAERS Safety Report 20662249 (Version 1)
Quarter: 2022Q2

REPORT INFORMATION
  Report Type: Report from Study
  Country: DE (occurrence: DE)
  Receive Date: 20220401
  Receipt Date: 20220401
  Transmission Date: 20220721
  Serious: Yes (Death)
  Sender: FDA-Public Use
  Company Number: DE-SUN PHARMACEUTICAL INDUSTRIES LTD-2022RR-331522

PATIENT
  Age: 85 Year
  Sex: Female

DRUGS (12)
  1. SONIDEGIB [Suspect]
     Active Substance: SONIDEGIB
     Indication: Basal cell carcinoma
     Dosage: 200 MILLIGRAM, DAILY
     Route: 048
     Dates: start: 20211027
  2. CHOLECALCIFEROL [Concomitant]
     Active Substance: CHOLECALCIFEROL
     Indication: Prophylaxis
     Dosage: 0.025 MILLIGRAM, DAILY
     Route: 048
     Dates: start: 20210804
  3. RIVAROXABAN [Concomitant]
     Active Substance: RIVAROXABAN
     Indication: Pre-existing disease
     Dosage: 15 MILLIGRAM, DAILY
     Route: 048
     Dates: start: 20210804
  4. RAMIPRIL [Concomitant]
     Active Substance: RAMIPRIL
     Indication: Pre-existing disease
     Dosage: 2.5 MILLIGRAM, DAILY
     Route: 048
     Dates: start: 20210804
  5. SIMVASTATIN [Concomitant]
     Active Substance: SIMVASTATIN
     Indication: Pre-existing disease
     Dosage: 10 MILLIGRAM, DAILY
     Route: 048
     Dates: start: 20210804
  6. Memantin hydrochlorid [Concomitant]
     Indication: Pre-existing disease
     Dosage: 10 MILLIGRAM, BID
     Route: 048
     Dates: start: 20210804
  7. PANTOPRAZOLE SODIUM [Concomitant]
     Active Substance: PANTOPRAZOLE SODIUM
     Indication: Pre-existing disease
     Dosage: 40 MILLIGRAM, DAILY
     Route: 048
     Dates: start: 20210804
  8. AMLODIPINE BESYLATE [Concomitant]
     Active Substance: AMLODIPINE BESYLATE
     Indication: Pre-existing disease
     Dosage: 5 MILLIGRAM, BID
     Route: 048
     Dates: start: 20210804
  9. BISOPROLOL [Concomitant]
     Active Substance: BISOPROLOL
     Indication: Pre-existing disease
     Dosage: 7.5 MILLIGRAM, DAILY
     Route: 048
     Dates: start: 20210804
  10. DIAZEPAM [Concomitant]
     Active Substance: DIAZEPAM
     Indication: Pre-existing disease
     Dosage: AS REQUIRED
     Route: 048
     Dates: start: 20210723
  11. Novaminsulfoln [Concomitant]
     Indication: Pre-existing disease
     Dosage: 500 MILLIGRAM
     Route: 048
     Dates: start: 20210823
  12. NIFEDIPINE [Concomitant]
     Active Substance: NIFEDIPINE
     Indication: Pre-existing disease
     Dosage: UNK
     Route: 048
     Dates: start: 20210726

REACTIONS (1)
  - Death [Fatal]

NARRATIVE: CASE EVENT DATE: 20220316
